FAERS Safety Report 14362762 (Version 1)
Quarter: 2018Q1

REPORT INFORMATION
  Report Type: Spontaneous
  Country: US (occurrence: US)
  Receive Date: 20180108
  Receipt Date: 20180108
  Transmission Date: 20180509
  Serious: No
  Sender: FDA-Public Use
  Company Number: US-JNJFOC-20171122039

PATIENT
  Age: 39 Year
  Sex: Male
  Weight: 61.24 kg

DRUGS (1)
  1. STELARA [Suspect]
     Active Substance: USTEKINUMAB
     Indication: PSORIASIS
     Route: 058
     Dates: start: 2016

REACTIONS (3)
  - Drug dose omission [Unknown]
  - Accidental exposure to product [Unknown]
  - Syringe issue [Unknown]

NARRATIVE: CASE EVENT DATE: 20171117
